FAERS Safety Report 6408278-X (Version None)
Quarter: 2009Q4

REPORT INFORMATION
  Report Type: 
  Country: None (occurrence: None)
  Receive Date: 20091021
  Receipt Date: 20091008
  Transmission Date: 20100525
  Serious: Yes (Other)
  Sender: FDA-Public Use
  Company Number: US-PFIZER INC-2009273810

PATIENT
  Sex: Female

DRUGS (1)
  1. GEODON [Suspect]

REACTIONS (4)
  - BLOOD GLUCOSE DECREASED [None]
  - HYPOTENSION [None]
  - NECK PAIN [None]
  - TARDIVE DYSKINESIA [None]
